FAERS Safety Report 10746469 (Version 1)
Quarter: 2015Q1

REPORT INFORMATION
  Report Type: Spontaneous
  Country: FI (occurrence: FI)
  Receive Date: 20150128
  Receipt Date: 20150128
  Transmission Date: 20150721
  Serious: Yes (Death)
  Sender: FDA-Public Use
  Company Number: PHHY2015FI009130

PATIENT
  Age: 51 Year
  Sex: Female

DRUGS (3)
  1. TEMESTA [Concomitant]
     Active Substance: LORAZEPAM
     Indication: ANXIETY DISORDER
     Dosage: 6 MG, QD
     Route: 048
     Dates: start: 2009
  2. LEPONEX [Suspect]
     Active Substance: CLOZAPINE
     Indication: SCHIZOPHRENIA
     Dosage: 100 MG, QD
     Route: 048
     Dates: start: 2009
  3. ZYPREXA [Suspect]
     Active Substance: OLANZAPINE
     Indication: SCHIZOPHRENIA
     Dosage: 20 MG, QD (5 MG + 15 MG IN A DAY)
     Route: 048
     Dates: start: 2009

REACTIONS (9)
  - Cholelithiasis [Unknown]
  - Sudden death [Fatal]
  - Hallucination, auditory [Unknown]
  - Diarrhoea [Unknown]
  - Overweight [Unknown]
  - Vaginal infection [Unknown]
  - Hepatic steatosis [Unknown]
  - Cardiac failure [Fatal]
  - Arrhythmia [Fatal]

NARRATIVE: CASE EVENT DATE: 200909
